FAERS Safety Report 9793043 (Version 1)
Quarter: 2013Q4

REPORT INFORMATION
  Report Type: Spontaneous
  Country: US (occurrence: None)
  Receive Date: 20131231
  Receipt Date: 20131231
  Transmission Date: 20140711
  Serious: Yes (Other)
  Sender: FDA-Public Use
  Company Number: None

PATIENT
  Age: 20 Year
  Sex: Female
  Weight: 72.58 kg

DRUGS (1)
  1. METHYLPHENIDATE ER [Suspect]
     Dosage: 1 PILL
     Route: 048
     Dates: start: 20131201, end: 20131213

REACTIONS (4)
  - Somnolence [None]
  - Fatigue [None]
  - Disturbance in attention [None]
  - Product substitution issue [None]
